FAERS Safety Report 9439124 (Version 3)
Quarter: 2013Q3

REPORT INFORMATION
  Report Type: Spontaneous
  Country: US (occurrence: US)
  Receive Date: 20130802
  Receipt Date: 20130917
  Transmission Date: 20140515
  Serious: Yes (Death, Hospitalization)
  Sender: FDA-Public Use
  Company Number: US-B.I. PHARMACEUTICALS,INC./RIDGEFIELD-2013-BI-22669BP

PATIENT
  Age: 88 Year
  Sex: Male
  Weight: 86 kg

DRUGS (11)
  1. PRADAXA [Suspect]
     Indication: CEREBROVASCULAR ACCIDENT PROPHYLAXIS
     Dosage: 300 MG
  2. PRADAXA [Suspect]
     Indication: ATRIAL FIBRILLATION
     Dosage: 150 MG
     Route: 048
     Dates: start: 201103
  3. IBUPROFEN [Suspect]
  4. BENICAR [Concomitant]
     Indication: HYPERTENSION
  5. AMLODIPINE [Concomitant]
  6. STATINS [Concomitant]
  7. COREG [Concomitant]
  8. LEVOXYL [Concomitant]
  9. XANAX [Concomitant]
  10. PRAVASTATIN [Concomitant]
  11. ASPIRIN [Concomitant]

REACTIONS (3)
  - Gastrointestinal haemorrhage [Fatal]
  - Pneumonia [Fatal]
  - Haemoptysis [Unknown]
